FAERS Safety Report 9344538 (Version 1)
Quarter: 2013Q2

REPORT INFORMATION
  Report Type: Spontaneous
  Country: US (occurrence: US)
  Receive Date: 20130612
  Receipt Date: 20130612
  Transmission Date: 20140414
  Serious: Yes (Hospitalization)
  Sender: FDA-Public Use
  Company Number: US-ELI_LILLY_AND_COMPANY-US201306001291

PATIENT
  Age: 71 Year
  Sex: Male

DRUGS (6)
  1. HUMALOG LISPRO [Suspect]
     Indication: TYPE 1 DIABETES MELLITUS
     Dosage: 10 U, PRN
     Dates: start: 201304
  2. ASPIRIN [Concomitant]
  3. CITALOPRAM [Concomitant]
     Dosage: 40 MG, UNKNOWN
  4. DIGOXIN [Concomitant]
     Dosage: 125 UG, UNK
  5. TRAMADOL [Concomitant]
     Dosage: 50 MG, UNK
  6. LEVOFLOXACIN [Concomitant]
     Dosage: 500 MG, UNK

REACTIONS (2)
  - Spinal fracture [Unknown]
  - Fall [Recovered/Resolved]
